FAERS Safety Report 6058150-2 (Version None)
Quarter: 2009Q1

REPORT INFORMATION
  Report Type: 
  Country: None (occurrence: None)
  Receive Date: 20090127
  Receipt Date: 20090116
  Transmission Date: 20090719
  Serious: Yes (Death)
  Sender: FDA-Public Use
  Company Number: 2009US000107

PATIENT
  Age: 17 Year
  Sex: Male

DRUGS (6)
  1. PROGRAF [Suspect]
     Indication: RENAL TRANSPLANT
     Dosage: 4 MG, UID/QD, ORAL
     Route: 048
     Dates: start: 20080708
  2. PREDNISOLONE [Concomitant]
  3. MYCOPHENOLATE MOFETIL [Concomitant]
  4. TRIMETHOPRIM [Concomitant]
  5. LOVASTATIN [Concomitant]
  6. NYSTATIN [Concomitant]

REACTIONS (2)
  - DIALYSIS [None]
  - MYOCARDIAL INFARCTION [None]
